FAERS Safety Report 4846344-0 (Version None)
Quarter: 2005Q4

REPORT INFORMATION
  Report Type: 
  Country: None (occurrence: None)
  Receive Date: 20051206
  Receipt Date: 20051124
  Transmission Date: 20060501
  Serious: Yes (Hospitalization)
  Sender: FDA-Public Use
  Company Number: FR-SANOFI-SYNTHELABO-A01200508161

PATIENT
  Age: 58 Year
  Sex: Female

DRUGS (4)
  1. PLAVIX [Suspect]
     Indication: CORONARY ARTERY DISEASE
     Route: 048
     Dates: start: 20010101, end: 20050901
  2. DIAMICRON [Concomitant]
     Dosage: UNK
     Route: 065
  3. SEREVENT [Concomitant]
     Dosage: UNK
     Route: 065
  4. COMBIVENT [Concomitant]
     Dosage: UNK
     Route: 065

REACTIONS (2)
  - HAEMATOMA [None]
  - PROTHROMBIN LEVEL DECREASED [None]
